FAERS Safety Report 6552607-3 (Version None)
Quarter: 2010Q1

REPORT INFORMATION
  Report Type: 
  Country: None (occurrence: None)
  Receive Date: 20100126
  Receipt Date: 20100119
  Transmission Date: 20100710
  Serious: Yes (Other)
  Sender: FDA-Public Use
  Company Number: US-PFIZER INC-2009312981

PATIENT
  Sex: Male
  Weight: 117.9 kg

DRUGS (2)
  1. CHANTIX [Suspect]
     Indication: TOBACCO ABUSE
     Dosage: UNK
     Dates: start: 20090715, end: 20091001
  2. CHANTIX [Suspect]
     Dosage: UNK
     Dates: start: 20091101

REACTIONS (4)
  - DYSPNOEA [None]
  - FLUID RETENTION [None]
  - SKIN DISCOLOURATION [None]
  - WEIGHT INCREASED [None]
